FAERS Safety Report 6611153-9 (Version None)
Quarter: 2010Q1

REPORT INFORMATION
  Report Type: 
  Country: None (occurrence: None)
  Receive Date: 20100302
  Receipt Date: 20100302
  Transmission Date: 20100710
  Serious: Yes (Hospitalization)
  Sender: FDA-Public Use
  Company Number: None

PATIENT
  Age: 74 Year
  Sex: Male
  Weight: 91 kg

DRUGS (5)
  1. ASPIRIN [Suspect]
     Indication: ATRIAL FIBRILLATION
     Dosage: 81 MG DAILY PO CHRONIC
     Route: 048
  2. COUMADIN [Suspect]
     Indication: ATRIAL FIBRILLATION
     Dosage: 5MG QHS PO CHRONIC
     Route: 048
  3. LIPITOR [Concomitant]
  4. TOPROL-XL [Concomitant]
  5. ALLOPURINOL [Concomitant]

REACTIONS (6)
  - CHILLS [None]
  - COUGH [None]
  - MALLORY-WEISS SYNDROME [None]
  - NAUSEA [None]
  - PYREXIA [None]
  - VOMITING [None]
